FAERS Safety Report 6284739-1 (Version None)
Quarter: 2009Q3

REPORT INFORMATION
  Report Type: 
  Country: None (occurrence: None)
  Receive Date: 20090727
  Receipt Date: 20090716
  Transmission Date: 20100115
  Serious: No
  Sender: FDA-Public Use
  Company Number: US-AVENTIS-200915083US

PATIENT
  Sex: Female
  Weight: 126 kg

DRUGS (16)
  1. APIDRA [Suspect]
     Dosage: DOSE: 1-50 (SLIDING SCALE) DEPENDING ON CARBS
     Route: 058
     Dates: start: 20060101
  2. OPTICLIK (INSULIN INJECTION PEN) [Suspect]
     Dates: start: 20060101
  3. LANTUS [Suspect]
     Route: 058
     Dates: start: 20060101
  4. CYTOMEL [Concomitant]
     Dosage: DOSE: 1/2 MCG
  5. NEXIUM [Concomitant]
  6. ADVAIR HFA [Concomitant]
     Dosage: DOSE: 500/50
  7. ALTACE [Concomitant]
  8. SIMVASTATIN [Concomitant]
  9. ASPIRIN [Concomitant]
  10. SINGULAIR [Concomitant]
  11. VITAMIN D3 [Concomitant]
     Dosage: DOSE: 10,000
  12. PROVIGIL [Concomitant]
  13. CYMBALTA [Concomitant]
  14. ALBUTEROL [Concomitant]
     Dosage: DOSE: UNK
  15. CARAFATE [Concomitant]
     Dosage: DOSE: UNK
  16. GUAIFENESIN [Concomitant]

REACTIONS (1)
  - BLOOD GLUCOSE INCREASED [None]
